FAERS Safety Report 5623255-4 (Version None)
Quarter: 2008Q1

REPORT INFORMATION
  Report Type: 
  Country: None (occurrence: None)
  Receive Date: 20080115
  Receipt Date: 20070105
  Transmission Date: 20080703
  Serious: Yes (Other)
  Sender: FDA-Public Use
  Company Number: 2007002251

PATIENT
  Age: 65 Year
  Sex: Female

DRUGS (1)
  1. AROMASIN [Suspect]
     Dates: start: 20040401, end: 20051101

REACTIONS (5)
  - ARTHRALGIA [None]
  - DEPRESSION [None]
  - FATIGUE [None]
  - MYALGIA [None]
  - OEDEMA [None]
